FAERS Safety Report 8513341-3 (Version None)
Quarter: 2012Q3

REPORT INFORMATION
  Report Type: 
  Country: None (occurrence: None)
  Receive Date: 20120716
  Receipt Date: 20120702
  Transmission Date: 20120928
  Serious: Yes (Other)
  Sender: FDA-Public Use
  Company Number: CHPA2012US014926

PATIENT
  Age: 94 Year
  Sex: Male

DRUGS (2)
  1. DRUG THERAPY NOS [Concomitant]
     Indication: GOUT
     Dosage: UNK, UNK
  2. MAALOX MS TOTAL STOMACH RELIEF [Suspect]
     Indication: GASTRIC DISORDER
     Dosage: UNK, PRN
     Route: 048
     Dates: start: 19820101

REACTIONS (4)
  - DIARRHOEA [None]
  - OFF LABEL USE [None]
  - GOUT [None]
  - GASTRIC DISORDER [None]
